FAERS Safety Report 15506029 (Version 1)
Quarter: 2018Q4

REPORT INFORMATION
  Report Type: Spontaneous
  Country: AU (occurrence: AU)
  Receive Date: 20181016
  Receipt Date: 20181016
  Transmission Date: 20190205
  Serious: Yes (Other)
  Sender: FDA-Public Use
  Company Number: AU-BAUSCH-BL-2018-027219

PATIENT
  Age: 61 Year
  Sex: Male

DRUGS (18)
  1. DEXAMETHASONE. [Suspect]
     Active Substance: DEXAMETHASONE
     Indication: B-CELL SMALL LYMPHOCYTIC LYMPHOMA
     Dosage: ONE CYCLE OF GDP (GEMCITABINE, DEXAMETHASONE AND CISPLATIN)
     Route: 065
  2. CHLORAMBUCIL [Suspect]
     Active Substance: CHLORAMBUCIL
     Indication: B-CELL SMALL LYMPHOCYTIC LYMPHOMA
     Route: 065
     Dates: end: 201307
  3. GEMCITABINE [Suspect]
     Active Substance: GEMCITABINE\GEMCITABINE HYDROCHLORIDE
     Indication: B-CELL SMALL LYMPHOCYTIC LYMPHOMA
     Dosage: ONE CYCLE OF GDP (GEMCITABINE, DEXAMETHASONE AND CISPLATIN)
     Route: 065
  4. IBRUTINIB [Suspect]
     Active Substance: IBRUTINIB
     Indication: THROMBOCYTOPENIA
     Route: 065
  5. METHOTREXATE. [Suspect]
     Active Substance: METHOTREXATE
     Indication: B-CELL SMALL LYMPHOCYTIC LYMPHOMA
     Dosage: TWO CYCLES OF HIGH-DOSE INTRAVENOUS METHOTREXATE AND CYTARABINE (B CYCLE OF HYPER-CVAD)
     Route: 065
  6. FLUDARABINE [Suspect]
     Active Substance: FLUDARABINE PHOSPHATE
     Indication: B-CELL SMALL LYMPHOCYTIC LYMPHOMA
     Dosage: ONE CYCLE OF FCR (FLUDARABINE, CYCLOPHOSPHAMIDE AND RITUXIMAB)
     Route: 065
  7. IMMUNOGLOBULIN NOS [Concomitant]
     Active Substance: IMMUNE GLOBULIN NOS
     Indication: SEVERE FEVER WITH THROMBOCYTOPENIA SYNDROME
     Route: 042
  8. PREDNISOLONE. [Suspect]
     Active Substance: PREDNISOLONE
     Dosage: SIX CYCLES OF R-CHOP FOLLOWED BY SIX FURTHER CYCLES OF R-CHOP
     Route: 065
  9. CYCLOPHOSPHAMIDE. [Suspect]
     Active Substance: CYCLOPHOSPHAMIDE
     Indication: B-CELL SMALL LYMPHOCYTIC LYMPHOMA
     Dosage: SIX CYCLES OF R-CHOP FOLLOWED BY SIX FURTHER CYCLES OF R-CHOP
     Route: 065
  10. RITUXIMAB. [Suspect]
     Active Substance: RITUXIMAB
     Dosage: ONE CYCLE OF FCR (FLUDARABINE, CYCLOPHOSPHAMIDE AND RITUXIMAB)
     Route: 065
  11. IBRUTINIB [Suspect]
     Active Substance: IBRUTINIB
     Dosage: DOSE ESCALATED
     Route: 065
  12. ROMIPLOSTIM [Concomitant]
     Active Substance: ROMIPLOSTIM
     Indication: THROMBOCYTOPENIA
  13. PREDNISOLONE. [Suspect]
     Active Substance: PREDNISOLONE
     Indication: B-CELL SMALL LYMPHOCYTIC LYMPHOMA
     Dosage: WITH INTERMITTENT CHLORAMBUCIL
     Route: 065
     Dates: end: 201307
  14. RITUXIMAB. [Suspect]
     Active Substance: RITUXIMAB
     Indication: B-CELL SMALL LYMPHOCYTIC LYMPHOMA
     Dosage: SIX CYCLES OF R-CHOP FOLLOWED BY SIX FURTHER CYCLES OF R-CHOP
     Route: 065
  15. CYCLOPHOSPHAMIDE. [Suspect]
     Active Substance: CYCLOPHOSPHAMIDE
     Dosage: ONE CYCLE OF FCR (FLUDARABINE, CYCLOPHOSPHAMIDE AND RITUXIMAB)
     Route: 065
  16. GANCICLOVIR. [Concomitant]
     Active Substance: GANCICLOVIR
     Indication: CYTOMEGALOVIRUS VIRAEMIA
     Route: 042
  17. CISPLATIN. [Suspect]
     Active Substance: CISPLATIN
     Indication: B-CELL SMALL LYMPHOCYTIC LYMPHOMA
     Dosage: ONE CYCLE OF GDP (GEMCITABINE, DEXAMETHASONE AND CISPLATIN)
     Route: 065
  18. CYTARABINE. [Suspect]
     Active Substance: CYTARABINE
     Indication: B-CELL SMALL LYMPHOCYTIC LYMPHOMA
     Dosage: TWO CYCLES OF HIGH-DOSE INTRAVENOUS METHOTREXATE AND CYTARABINE (B CYCLE OF HYPER-CVAD)
     Route: 065

REACTIONS (2)
  - Immune reconstitution inflammatory syndrome [Recovering/Resolving]
  - Therapy non-responder [Recovered/Resolved]
